FAERS Safety Report 6192268-9 (Version None)
Quarter: 2009Q2

REPORT INFORMATION
  Report Type: 
  Country: None (occurrence: None)
  Receive Date: 20090515
  Receipt Date: 20090512
  Transmission Date: 20091009
  Serious: Yes (Death, Life-Threatening, Hospitalization)
  Sender: FDA-Public Use
  Company Number: PHHY2008JP12007

PATIENT
  Age: 66 Year
  Sex: Male

DRUGS (12)
  1. GLEEVEC [Suspect]
     Indication: ACUTE LYMPHOCYTIC LEUKAEMIA
     Dosage: 300 MG/DAY
     Route: 048
     Dates: start: 20071208, end: 20080422
  2. GLEEVEC [Suspect]
     Dosage: 500 MG/DAY
     Route: 048
     Dates: start: 20080423, end: 20080507
  3. GLEEVEC [Suspect]
     Dosage: 600 MG/DAY
     Route: 048
     Dates: start: 20080508, end: 20080529
  4. GLEEVEC [Suspect]
     Dosage: 500 MG/DAY
     Route: 048
     Dates: start: 20080530, end: 20080606
  5. METHOTREXATE [Concomitant]
     Dosage: 15 MG
  6. CYLOCIDE [Concomitant]
     Dosage: 40 MG
  7. PREDNISOLONE [Concomitant]
     Dosage: 10 MG
  8. SALINE [Concomitant]
  9. CYCLOPHOSPHAMIDE [Concomitant]
  10. DOXORUBICIN HCL [Concomitant]
  11. VINCRISTINE [Concomitant]
  12. ETOPOSIDE [Concomitant]

REACTIONS (18)
  - ACUTE LYMPHOCYTIC LEUKAEMIA RECURRENT [None]
  - BRAIN HERNIATION [None]
  - BRAIN SCAN ABNORMAL [None]
  - DEPRESSED LEVEL OF CONSCIOUSNESS [None]
  - DISORIENTATION [None]
  - DYSARTHRIA [None]
  - DYSKINESIA [None]
  - ENCEPHALITIS [None]
  - GENERAL PHYSICAL HEALTH DETERIORATION [None]
  - HAEMORRHAGE [None]
  - HEADACHE [None]
  - HYPERTROPHY [None]
  - HYPOAESTHESIA [None]
  - INCONTINENCE [None]
  - INTRACRANIAL HYPOTENSION [None]
  - SUBDURAL HAEMATOMA [None]
  - SUBDURAL HYGROMA [None]
  - VASODILATATION [None]
